FAERS Safety Report 20736459 (Version 1)
Quarter: 2022Q2

REPORT INFORMATION
  Report Type: Other
  Country: NG (occurrence: None)
  Receive Date: 20220421
  Receipt Date: 20220421
  Transmission Date: 20220721
  Serious: Yes (Death)
  Sender: FDA-Public Use
  Company Number: NG-ROCHE-3080847

PATIENT
  Age: 44 Year
  Sex: Female
  Weight: 61.5 kg

DRUGS (1)
  1. AVASTIN [Suspect]
     Active Substance: BEVACIZUMAB
     Indication: Ovarian cancer
     Route: 042
     Dates: end: 20211208

REACTIONS (1)
  - Death [Fatal]

NARRATIVE: CASE EVENT DATE: 20220415
